FAERS Safety Report 16788666 (Version 1)
Quarter: 2019Q3

REPORT INFORMATION
  Report Type: Spontaneous
  Country: IE (occurrence: IE)
  Receive Date: 20190910
  Receipt Date: 20190910
  Transmission Date: 20191005
  Serious: Yes (Hospitalization)
  Sender: FDA-Public Use
  Company Number: IE-TEVA-2019-IE-1105244

PATIENT
  Age: 60 Year
  Sex: Male

DRUGS (2)
  1. GEMCITABINE. [Suspect]
     Active Substance: GEMCITABINE
     Indication: TRANSITIONAL CELL CARCINOMA
     Dosage: SIX CONSECUTIVE CYCLES
     Route: 065
  2. CISPLATIN. [Suspect]
     Active Substance: CISPLATIN
     Indication: TRANSITIONAL CELL CARCINOMA
     Dosage: SIX CONSECUTIVE CYCLES
     Route: 065

REACTIONS (5)
  - Cardiac ventricular thrombosis [Recovered/Resolved]
  - Embolic stroke [Recovered/Resolved]
  - Arteriosclerosis [Unknown]
  - Thrombocytopenia [Unknown]
  - Hypomagnesaemia [Unknown]
